FAERS Safety Report 23932393 (Version 2)
Quarter: 2024Q2

REPORT INFORMATION
  Report Type: Report from Study
  Country: JP (occurrence: JP)
  Receive Date: 20240603
  Receipt Date: 20240618
  Transmission Date: 20240717
  Serious: Yes (Other)
  Sender: FDA-Public Use
  Company Number: JP-JNJFOC-20240602450

PATIENT

DRUGS (1)
  1. STELARA [Suspect]
     Active Substance: USTEKINUMAB
     Indication: Crohn^s disease
     Dosage: DOSE UNKNOWN
     Route: 065

REACTIONS (3)
  - Campylobacter gastroenteritis [Unknown]
  - Arthralgia [Unknown]
  - Drug ineffective [Unknown]
